FAERS Safety Report 22030677 (Version 3)
Quarter: 2023Q2

REPORT INFORMATION
  Report Type: Spontaneous
  Country: JP (occurrence: JP)
  Receive Date: 20230223
  Receipt Date: 20230426
  Transmission Date: 20230722
  Serious: Yes (Hospitalization, Other)
  Sender: FDA-Public Use
  Company Number: JP-MSD-M2023-06475

PATIENT
  Age: 76 Year
  Sex: Male
  Weight: 68 kg

DRUGS (10)
  1. LAGEVRIO [Suspect]
     Active Substance: MOLNUPIRAVIR
     Indication: COVID-19 treatment
     Dosage: 800 MILLIGRAM, BID
     Route: 048
     Dates: start: 20230209, end: 20230209
  2. LIMAPROST [Concomitant]
     Active Substance: LIMAPROST
     Indication: Lumbar spinal stenosis
     Dosage: 5 MICROGRAM, TID
     Route: 048
     Dates: start: 201803
  3. CANDESARTAN CILEXETIL [Concomitant]
     Active Substance: CANDESARTAN CILEXETIL
     Indication: Hypertension
     Dosage: 4 MILLIGRAM, QD
     Route: 048
  4. ICOSAPENT ETHYL [Concomitant]
     Active Substance: ICOSAPENT ETHYL
     Indication: Peripheral arterial occlusive disease
     Dosage: 900 MILLIGRAM, QD
     Route: 048
  5. XARELTO [Concomitant]
     Active Substance: RIVAROXABAN
     Dosage: UNK
     Route: 048
  6. CALONAL [Concomitant]
     Active Substance: ACETAMINOPHEN
     Indication: COVID-19 treatment
     Dosage: 400 MILLIGRAM, PRN
     Route: 048
     Dates: start: 202302, end: 202302
  7. INDOMETHACIN [Concomitant]
     Active Substance: INDOMETHACIN
     Dosage: UNK
     Route: 051
  8. ASPIRIN [Concomitant]
     Active Substance: ASPIRIN
     Dosage: 100 MILLIGRAM, QD
     Route: 048
  9. DIMETHICONE [Concomitant]
     Active Substance: DIMETHICONE
     Dosage: 40 MILLIGRAM, TID
     Route: 048
  10. VALSARTAN [Concomitant]
     Active Substance: VALSARTAN
     Dosage: 40 MILLIGRAM, QD
     Route: 048

REACTIONS (9)
  - Rhabdomyolysis [Recovering/Resolving]
  - Blood creatine phosphokinase increased [Recovered/Resolved]
  - Ventricular hypokinesia [Unknown]
  - Electrocardiogram T wave inversion [Unknown]
  - Malaise [Unknown]
  - Dysstasia [Unknown]
  - Muscle contusion [Unknown]
  - Left ventricular hypertrophy [Unknown]
  - Troponin I increased [Unknown]

NARRATIVE: CASE EVENT DATE: 20230210
